FAERS Safety Report 4303678-6 (Version None)
Quarter: 2004Q1

REPORT INFORMATION
  Report Type: 
  Country: None (occurrence: None)
  Receive Date: 20040223
  Receipt Date: 20040210
  Transmission Date: 20041129
  Serious: Yes (Death)
  Sender: FDA-Public Use
  Company Number: KDL019616

PATIENT
  Age: 82 Year
  Sex: Male
  Weight: 74.9 kg

DRUGS (6)
  1. PROCRIT [Suspect]
     Indication: PRE-EXISTING DISEASE
     Dosage: 40000 U, 1 IN 1 WEEKS
     Dates: start: 20020911, end: 20030818
  2. DIGOXIN [Concomitant]
  3. FUROSEMIDE [Concomitant]
  4. DILTIAZEM HYDROCHLORIDE [Concomitant]
  5. ENALAPRIL MALEATE [Concomitant]
  6. ZOLPIDEM TARTRATE [Concomitant]

REACTIONS (4)
  - CARDIOGENIC SHOCK [None]
  - METASTASES TO BONE [None]
  - SEPSIS [None]
  - SLEEP DISORDER [None]
